FAERS Safety Report 7259943-6 (Version None)
Quarter: 2011Q1

REPORT INFORMATION
  Report Type: 
  Country: None (occurrence: None)
  Receive Date: 20110130
  Receipt Date: 20101006
  Transmission Date: 20110831
  Serious: No
  Sender: FDA-Public Use
  Company Number: US-ABBOTT-10P-163-0676405-00

PATIENT
  Age: 21 Year
  Sex: Female

DRUGS (3)
  1. PREDNISONE [Concomitant]
     Indication: UVEITIS
  2. SEASONIQUE [Concomitant]
     Indication: CONTRACEPTION
  3. HUMIRA [Suspect]
     Indication: JUVENILE ARTHRITIS
     Dosage: PATIENT NOT SURE, BUT THINKS ITS 40MG EVERY 2 WEEKS
     Dates: start: 20101005

REACTIONS (1)
  - INJECTION SITE PAIN [None]
